FAERS Safety Report 6739354-X (Version None)
Quarter: 2010Q2

REPORT INFORMATION
  Report Type: 
  Country: None (occurrence: None)
  Receive Date: 20100525
  Receipt Date: 20100430
  Transmission Date: 20101027
  Serious: Yes (Hospitalization, Other)
  Sender: FDA-Public Use
  Company Number: US-BAYER-201013276NA

PATIENT
  Age: 21 Year
  Sex: Female
  Weight: 51 kg

DRUGS (5)
  1. YAZ [Suspect]
     Indication: DRUG USE FOR UNKNOWN INDICATION
     Route: 048
     Dates: start: 20080101, end: 20080828
  2. NUBAIN [Concomitant]
  3. COMPAZINE [Concomitant]
     Route: 042
  4. NORMAL SALINE [Concomitant]
     Route: 042
  5. CARAFATE [Concomitant]
     Dosage: TOTAL DAILY DOSE: 6 ML  UNIT DOSE: 2 ML

REACTIONS (16)
  - ABDOMINAL PAIN UPPER [None]
  - BACK PAIN [None]
  - BILIARY COLIC [None]
  - BILIARY DYSKINESIA [None]
  - CHEST PAIN [None]
  - CHOLECYSTITIS CHRONIC [None]
  - CHOLELITHIASIS [None]
  - DIZZINESS [None]
  - DYSPEPSIA [None]
  - FATIGUE [None]
  - GASTRITIS [None]
  - MIGRAINE [None]
  - NAUSEA [None]
  - PYREXIA [None]
  - SINUSITIS [None]
  - VOMITING [None]
